FAERS Safety Report 12993086 (Version 1)
Quarter: 2016Q4

REPORT INFORMATION
  Report Type: Other
  Country: CA (occurrence: CA)
  Receive Date: 20161202
  Receipt Date: 20161202
  Transmission Date: 20170207
  Serious: Yes (Hospitalization, Other)
  Sender: FDA-Public Use
  Company Number: CA-APOTEX-2016AP015040

PATIENT
  Age: 59 Year
  Sex: Male

DRUGS (2)
  1. APO-BENZTROPINE [Suspect]
     Active Substance: BENZTROPINE
     Indication: BIPOLAR DISORDER
     Dosage: UNK
     Route: 065
  2. APO-HALOPERIDOL [Suspect]
     Active Substance: HALOPERIDOL
     Indication: BIPOLAR DISORDER
     Dosage: 2 MG, TID
     Route: 065

REACTIONS (1)
  - Parkinsonism [Recovered/Resolved]
